FAERS Safety Report 6048497-8 (Version None)
Quarter: 2009Q1

REPORT INFORMATION
  Report Type: 
  Country: None (occurrence: None)
  Receive Date: 20090123
  Receipt Date: 20090116
  Transmission Date: 20090719
  Serious: Yes (Disabling)
  Sender: FDA-Public Use
  Company Number: B0554518A

PATIENT
  Age: 68 Year
  Sex: Female

DRUGS (6)
  1. ALKERAN [Suspect]
     Dosage: .25MGK PER DAY
     Route: 048
     Dates: start: 20070601, end: 20080517
  2. THALIDOMIDE [Suspect]
     Route: 048
     Dates: start: 20071022, end: 20080517
  3. LODALES [Suspect]
     Dosage: 40MG PER DAY
     Route: 048
     Dates: start: 20040101
  4. KARDEGIC [Suspect]
     Indication: THROMBOSIS PROPHYLAXIS
     Dosage: 75MG PER DAY
     Route: 048
     Dates: start: 20071022, end: 20080517
  5. DECTANCYL [Concomitant]
     Dosage: 40MG PER DAY
     Route: 048
     Dates: start: 20080411, end: 20080517
  6. SKENAN [Concomitant]
     Dosage: 10MG TWICE PER DAY
     Route: 048
     Dates: start: 20050101

REACTIONS (3)
  - DYSAESTHESIA [None]
  - PARAESTHESIA [None]
  - SOMNOLENCE [None]
